FAERS Safety Report 18286815 (Version 1)
Quarter: 2020Q3

REPORT INFORMATION
  Report Type: Report from Study
  Country: None (occurrence: US)
  Receive Date: 20200921
  Receipt Date: 20200921
  Transmission Date: 20201103
  Serious: Yes (Other)
  Sender: FDA-Public Use
  Company Number: US-ABBVIE-20K-163-3513577-00

PATIENT
  Sex: Male

DRUGS (2)
  1. AZACITIDINE. [Concomitant]
     Active Substance: AZACITIDINE
     Indication: ACUTE MYELOID LEUKAEMIA
  2. VENCLEXTA [Suspect]
     Active Substance: VENETOCLAX
     Indication: ACUTE MYELOID LEUKAEMIA
     Route: 048
     Dates: start: 20200430

REACTIONS (4)
  - Pain in extremity [Not Recovered/Not Resolved]
  - Back pain [Not Recovered/Not Resolved]
  - Skin cancer [Recovering/Resolving]
  - Unevaluable event [Unknown]

NARRATIVE: CASE EVENT DATE: 2020
